FAERS Safety Report 22036827 (Version 7)
Quarter: 2024Q1

REPORT INFORMATION
  Report Type: Report from Study
  Country: CN (occurrence: CN)
  Receive Date: 20230225
  Receipt Date: 20240222
  Transmission Date: 20240410
  Serious: Yes (Hospitalization)
  Sender: FDA-Public Use
  Company Number: CN-002147023-NVSC2023CN039925

PATIENT
  Age: 28 Year
  Sex: Male
  Weight: 65.5 kg

DRUGS (5)
  1. COSENTYX [Suspect]
     Active Substance: SECUKINUMAB
     Indication: Psoriasis
     Dosage: 300 MG, QMO, (4 WEEKS)
     Route: 058
     Dates: start: 20220212
  2. COSENTYX [Suspect]
     Active Substance: SECUKINUMAB
     Dosage: 300 MG, QMO, (4 WEEKS)
     Route: 058
     Dates: start: 20221224, end: 20230128
  3. ACARBOSE [Concomitant]
     Active Substance: ACARBOSE
     Indication: Diabetes mellitus
     Dosage: 50 MG, TID
     Route: 048
     Dates: start: 202212, end: 20230102
  4. ACARBOSE [Concomitant]
     Active Substance: ACARBOSE
     Dosage: 100 MG, TID
     Route: 048
     Dates: start: 20230103
  5. TRIAMCINOLONE ACETONIDE ACETATE AND UREA [Concomitant]
     Indication: Psoriasis
     Dosage: UNK, BID, (QUANTUM STASIS)
     Route: 065
     Dates: start: 20221008

REACTIONS (5)
  - Fascial infection [Recovered/Resolved]
  - Toothache [Recovered/Resolved]
  - Pain [Recovered/Resolved]
  - Swelling face [Recovered/Resolved]
  - Pericoronitis [Recovered/Resolved]

NARRATIVE: CASE EVENT DATE: 20230111
